FAERS Safety Report 4904035-1 (Version None)
Quarter: 2006Q1

REPORT INFORMATION
  Report Type: 
  Country: None (occurrence: None)
  Receive Date: 20060208
  Receipt Date: 20031218
  Transmission Date: 20060701
  Serious: No
  Sender: FDA-Public Use
  Company Number: US-GLAXOSMITHKLINE-A0493099A

PATIENT
  Sex: Male

DRUGS (3)
  1. PAXIL [Suspect]
     Indication: DRUG USE FOR UNKNOWN INDICATION
     Dosage: 10MG PER DAY
     Route: 048
     Dates: start: 19981217
  2. ZOLOFT [Concomitant]
  3. FLONASE [Concomitant]

REACTIONS (10)
  - DIZZINESS [None]
  - DRUG WITHDRAWAL SYNDROME [None]
  - DYSPHORIA [None]
  - FATIGUE [None]
  - HEADACHE [None]
  - HYPOAESTHESIA [None]
  - IRRITABILITY [None]
  - SENSORY DISTURBANCE [None]
  - SLEEP DISORDER [None]
  - WEIGHT INCREASED [None]
